FAERS Safety Report 12615408 (Version 1)
Quarter: 2016Q3

REPORT INFORMATION
  Report Type: Spontaneous
  Country: US (occurrence: US)
  Receive Date: 20160802
  Receipt Date: 20160802
  Transmission Date: 20161109
  Serious: Yes (Other)
  Sender: FDA-Public Use
  Company Number: US-PFIZER INC-2016358503

PATIENT
  Age: 54 Year
  Sex: Female

DRUGS (5)
  1. OXTRIPHYLLINE [Concomitant]
     Active Substance: OXTRIPHYLLINE
     Dosage: 200 MG, 4X/DAY
  2. BECLOMETHASONE [Concomitant]
     Active Substance: BECLOMETHASONE
     Dosage: UNK
  3. SPIRONOLACTONE. [Concomitant]
     Active Substance: SPIRONOLACTONE
     Dosage: 25 MG, 2X/DAY
  4. HYDROCHLOROTHIAZIDE. [Concomitant]
     Active Substance: HYDROCHLOROTHIAZIDE
     Dosage: 50 MG, 2X/DAY
  5. AMMONIUM CHLORIDE. [Suspect]
     Active Substance: AMMONIUM CHLORIDE
     Indication: METABOLIC ALKALOSIS
     Dosage: 15 MG, UNK (IN 2% SOLUTION)
     Route: 051

REACTIONS (4)
  - Coma [Recovered/Resolved]
  - Aggression [Recovered/Resolved]
  - Lethargy [Recovered/Resolved]
  - Confusional state [Recovered/Resolved]
